FAERS Safety Report 4809733-6 (Version None)
Quarter: 2005Q4

REPORT INFORMATION
  Report Type: 
  Country: None (occurrence: None)
  Receive Date: 20051021
  Receipt Date: 20051021
  Transmission Date: 20060501
  Serious: Yes (Hospitalization)
  Sender: FDA-Public Use
  Company Number: None

PATIENT
  Age: 73 Year
  Sex: Male
  Weight: 66.7 kg

DRUGS (1)
  1. UROXATRAL [Suspect]
     Dosage: PO
     Route: 048

REACTIONS (1)
  - SYNCOPE [None]
